FAERS Safety Report 21949234 (Version 1)
Quarter: 2023Q1

REPORT INFORMATION
  Report Type: Spontaneous
  Country: CA (occurrence: CA)
  Receive Date: 20230203
  Receipt Date: 20230203
  Transmission Date: 20230418
  Serious: Yes (Other)
  Sender: FDA-Public Use
  Company Number: None

PATIENT
  Age: 36 Year
  Sex: Female

DRUGS (23)
  1. METHOTREXATE [Suspect]
     Active Substance: METHOTREXATE
     Indication: Product used for unknown indication
     Dosage: 1 EVERY 1 WEEKS
     Route: 048
  2. ACTEMRA [Concomitant]
     Active Substance: TOCILIZUMAB
     Route: 058
  3. ANUSOL HC [Concomitant]
     Active Substance: HYDROCORTISONE
     Dosage: 1 EVERY 1 DAYS
  4. BETADERM [Concomitant]
     Active Substance: BETAMETHASONE VALERATE
     Dosage: 2 EVERY 1 DAYS
  5. CALCIUM [Concomitant]
     Active Substance: CALCIUM
     Dosage: 1 EVERY 1 DAYS
     Route: 048
  6. ESCITALOPRAM OXALATE [Concomitant]
     Active Substance: ESCITALOPRAM OXALATE
     Dosage: 1 EVERY 1 DAYS
  7. FOLIC ACID [Concomitant]
     Active Substance: FOLIC ACID
     Route: 048
  8. IBUPROFEN [Concomitant]
     Active Substance: IBUPROFEN
     Dosage: 3 EVERY 1 DAYS
  9. OMEGA 3 [Concomitant]
     Active Substance: CAPSAICIN
  10. ABATACEPT [Concomitant]
     Active Substance: ABATACEPT
     Route: 042
  11. PENNSAID [Concomitant]
     Active Substance: DICLOFENAC SODIUM
     Dosage: SOLUTION TOPICAL, 1 EVERY 1 DAYS
  12. PROBIOTICS NOS [Concomitant]
     Active Substance: PROBIOTICS NOS
     Dosage: 1 EVERY 1 DAYS
  13. REMICADE [Concomitant]
     Active Substance: INFLIXIMAB
  14. UPADACITINIB [Concomitant]
     Active Substance: UPADACITINIB
     Dosage: EXTENDED- RELEASE, 1 EVERY 1 DAYS
  15. RITUXIMAB [Concomitant]
     Active Substance: RITUXIMAB
  16. TYLENOL [Concomitant]
     Active Substance: ACETAMINOPHEN
     Indication: Headache
     Dosage: 3 EVERY 1 DAYS
  17. UBIDECARENONE [Concomitant]
     Active Substance: UBIDECARENONE
     Dosage: 1 EVERY 1 DAYS
  18. VENLAFAXINE [Concomitant]
     Active Substance: VENLAFAXINE HYDROCHLORIDE
     Dosage: 1 EVERY 1 DAYS
  19. VITAMIN D NOS [Concomitant]
     Active Substance: VITAMIN D NOS
     Dosage: 1 EVERY 1 DAYS
  20. VITAMIN B6 [Concomitant]
     Active Substance: PYRIDOXINE HYDROCHLORIDE
     Dosage: 1 EVERY 1 DAYS
  21. VITAMINS NOS [Concomitant]
     Active Substance: VITAMINS
     Dosage: 1 EVERY 1 DAYS
     Route: 048
  22. METHOTREXATE [Suspect]
     Active Substance: METHOTREXATE
     Indication: Product used for unknown indication
     Dosage: 1 EVERY 1 WEEKS
     Route: 048
  23. REMICADE [Concomitant]
     Active Substance: INFLIXIMAB

REACTIONS (16)
  - Alanine aminotransferase increased [Unknown]
  - Arthralgia [Unknown]
  - Benign breast neoplasm [Unknown]
  - Blood bilirubin increased [Unknown]
  - Blood thyroid stimulating hormone increased [Unknown]
  - Breast mass [Unknown]
  - Dizziness [Unknown]
  - Eczema [Unknown]
  - Joint swelling [Unknown]
  - Musculoskeletal stiffness [Unknown]
  - Red blood cell sedimentation rate increased [Unknown]
  - Swelling [Unknown]
  - Tremor [Unknown]
  - Tuberculin test positive [Unknown]
  - Vertigo [Unknown]
  - Vitamin D decreased [Unknown]
